FAERS Safety Report 22391222 (Version 1)
Quarter: 2023Q2

REPORT INFORMATION
  Report Type: Spontaneous
  Country: FR (occurrence: FR)
  Receive Date: 20230601
  Receipt Date: 20230601
  Transmission Date: 20230721
  Serious: Yes (Hospitalization)
  Sender: FDA-Public Use
  Company Number: None

PATIENT
  Age: 65 Year
  Sex: Female

DRUGS (5)
  1. RISPERDAL [Suspect]
     Active Substance: RISPERIDONE
     Indication: Mental disorder
     Route: 048
     Dates: start: 20230509, end: 20230511
  2. RISPERDAL [Suspect]
     Active Substance: RISPERIDONE
     Route: 048
     Dates: start: 20230512, end: 20230514
  3. RISPERDAL [Suspect]
     Active Substance: RISPERIDONE
     Route: 048
     Dates: start: 20230506, end: 20230508
  4. CHLORPROMAZINE [Suspect]
     Active Substance: CHLORPROMAZINE
     Indication: Mental disorder
     Route: 048
     Dates: start: 20230505, end: 20230512
  5. CHLORPROMAZINE [Suspect]
     Active Substance: CHLORPROMAZINE
     Route: 048
     Dates: start: 20230513, end: 20230515

REACTIONS (3)
  - Hepatitis [Recovering/Resolving]
  - Confusional state [Recovering/Resolving]
  - Cholestasis [Not Recovered/Not Resolved]

NARRATIVE: CASE EVENT DATE: 20230514
